FAERS Safety Report 12277206 (Version 1)
Quarter: 2016Q2

REPORT INFORMATION
  Report Type: Spontaneous
  Country: US (occurrence: US)
  Receive Date: 20160418
  Receipt Date: 20160418
  Transmission Date: 20160815
  Serious: No
  Sender: FDA-Public Use
  Company Number: US-TEVA-636143USA

PATIENT
  Age: 63 Year
  Sex: Female

DRUGS (5)
  1. ISOMETHEPTENE [Concomitant]
     Active Substance: ISOMETHEPTENE
  2. NORTRIPTYLINE [Concomitant]
     Active Substance: NORTRIPTYLINE
  3. ZECUITY [Suspect]
     Active Substance: SUMATRIPTAN SUCCINATE
     Route: 062
     Dates: start: 20160213
  4. SYNTHROID [Concomitant]
     Active Substance: LEVOTHYROXINE SODIUM
  5. TOPAMAX [Concomitant]
     Active Substance: TOPIRAMATE

REACTIONS (4)
  - Application site erythema [Not Recovered/Not Resolved]
  - Application site pruritus [Not Recovered/Not Resolved]
  - Application site swelling [Unknown]
  - Application site papules [Unknown]

NARRATIVE: CASE EVENT DATE: 20160213
